FAERS Safety Report 11713896 (Version 4)
Quarter: 2016Q3

REPORT INFORMATION
  Report Type: Spontaneous
  Country: US (occurrence: US)
  Receive Date: 20151109
  Receipt Date: 20160927
  Transmission Date: 20161109
  Serious: Yes (Congenital Anomaly, Other)
  Sender: FDA-Public Use
  Company Number: PHEH2015US022876

PATIENT
  Sex: Female

DRUGS (3)
  1. ZOFRAN [Suspect]
     Active Substance: ONDANSETRON HYDROCHLORIDE
     Indication: FOETAL EXPOSURE DURING PREGNANCY
     Dosage: UNK
     Route: 064
  2. ONDANSETRON DR REDDY [Suspect]
     Active Substance: ONDANSETRON
     Indication: FOETAL EXPOSURE DURING PREGNANCY
     Dosage: MOTHER^S DOSE: 4 MG
     Route: 064
  3. ONDANSETRON HYDROCHLORIDE. [Suspect]
     Active Substance: ONDANSETRON HYDROCHLORIDE
     Indication: FOETAL EXPOSURE DURING PREGNANCY
     Dosage: UNK
     Route: 064

REACTIONS (21)
  - Multiple congenital abnormalities [Unknown]
  - Congenital anomaly [Unknown]
  - Pulmonary valve stenosis congenital [Unknown]
  - Atrioventricular block [Unknown]
  - Hypoxia [Unknown]
  - Emotional distress [Unknown]
  - Anxiety [Unknown]
  - Congenital arterial malformation [Unknown]
  - Injury [Unknown]
  - Fallot^s tetralogy [Unknown]
  - Ventricular septal defect [Unknown]
  - Right ventricular dilatation [Unknown]
  - Right ventricular hypertrophy [Unknown]
  - Foetal exposure during pregnancy [Unknown]
  - Tachypnoea [Unknown]
  - Cardiac murmur [Unknown]
  - Heart disease congenital [Unknown]
  - Hyperdynamic left ventricle [Unknown]
  - Pain [Unknown]
  - Atrial septal defect [Unknown]
  - Anhedonia [Unknown]
